FAERS Safety Report 5628170-8 (Version None)
Quarter: 2008Q1

REPORT INFORMATION
  Report Type: 
  Country: None (occurrence: None)
  Receive Date: 20080215
  Receipt Date: 20080213
  Transmission Date: 20080703
  Serious: Yes (Other)
  Sender: FDA-Public Use
  Company Number: GB-JNJFOC-20080202711

PATIENT
  Sex: Male

DRUGS (3)
  1. RISPERDAL CONSTA [Suspect]
     Route: 030
  2. RISPERDAL CONSTA [Suspect]
     Indication: SCHIZOPHRENIA
     Route: 030
  3. HALOPERIDOL [Concomitant]
     Route: 065

REACTIONS (4)
  - AGGRESSION [None]
  - ANXIETY [None]
  - DRUG INEFFECTIVE [None]
  - PARANOIA [None]
